FAERS Safety Report 13120806 (Version 1)
Quarter: 2017Q1

REPORT INFORMATION
  Report Type: Spontaneous
  Country: US (occurrence: US)
  Receive Date: 20170113
  Receipt Date: 20170113
  Transmission Date: 20170428
  Serious: No
  Sender: FDA-Public Use
  Company Number: None

PATIENT
  Age: 58 Year
  Sex: Male

DRUGS (1)
  1. HUMIRA [Suspect]
     Active Substance: ADALIMUMAB
     Indication: RHEUMATOID ARTHRITIS
     Dosage: 40MG; Q2WEEKS; SQ
     Route: 058
     Dates: start: 20161214, end: 20161228

REACTIONS (3)
  - Hyperhidrosis [None]
  - Infection [None]
  - Chills [None]

NARRATIVE: CASE EVENT DATE: 20161220
